FAERS Safety Report 8271453-6 (Version None)
Quarter: 2012Q1

REPORT INFORMATION
  Report Type: 
  Country: None (occurrence: None)
  Receive Date: 20120308
  Receipt Date: 20111206
  Transmission Date: 20120608
  Serious: No
  Sender: FDA-Public Use
  Company Number: PHEH2011US010260

PATIENT
  Age: 33 Year
  Sex: Female
  Weight: 72.6 kg

DRUGS (1)
  1. FANAPT [Suspect]
     Dosage: BID

REACTIONS (1)
  - INCREASED APPETITE [None]
